FAERS Safety Report 19351239 (Version 1)
Quarter: 2021Q2

REPORT INFORMATION
  Report Type: Spontaneous
  Country: FR (occurrence: FR)
  Receive Date: 20210531
  Receipt Date: 20210531
  Transmission Date: 20210717
  Serious: Yes (Other)
  Sender: FDA-Public Use
  Company Number: ALC2021FR003451

PATIENT

DRUGS (1)
  1. ATROPINE ALCON 1% [Suspect]
     Active Substance: ATROPINE
     Indication: OPHTHALMOLOGICAL EXAMINATION
     Dosage: SINGLE DOSE (1 DROP (1/12 MILLILITER)
     Route: 047
     Dates: start: 20210501

REACTIONS (3)
  - Vertigo [Recovering/Resolving]
  - Eye pain [Recovering/Resolving]
  - Mydriasis [Recovering/Resolving]

NARRATIVE: CASE EVENT DATE: 20210501
